FAERS Safety Report 10579964 (Version 2)
Quarter: 2014Q4

REPORT INFORMATION
  Report Type: Report from Study
  Country: CA (occurrence: CA)
  Receive Date: 20141112
  Receipt Date: 20141112
  Transmission Date: 20150529
  Serious: Yes (Death, Other)
  Sender: FDA-Public Use
  Company Number: CA-ASTRAZENECA-2014SE59934

PATIENT
  Age: 21669 Day
  Sex: Male

DRUGS (12)
  1. VENTOLIN [Concomitant]
     Active Substance: ALBUTEROL SULFATE
  2. DILANTIN [Concomitant]
     Active Substance: PHENYTOIN
  3. ZOLADEX LA [Suspect]
     Active Substance: GOSERELIN ACETATE
     Indication: PROSTATE CANCER
     Route: 058
     Dates: start: 20130502
  4. COVERSYL [Concomitant]
     Active Substance: PERINDOPRIL
     Dosage: 8/25 MG DAILY
  5. CLOPIDOGREL [Concomitant]
     Active Substance: CLOPIDOGREL BISULFATE
  6. ATORVASTATIN [Concomitant]
     Active Substance: ATORVASTATIN
  7. SENOKOT [Concomitant]
     Active Substance: SENNOSIDES
  8. SPIRONOLACTONE. [Concomitant]
     Active Substance: SPIRONOLACTONE
  9. ADVAIR HFA [Concomitant]
     Active Substance: FLUTICASONE PROPIONATE\SALMETEROL XINAFOATE
  10. BISOPROLOL [Concomitant]
     Active Substance: BISOPROLOL
  11. COLACE [Concomitant]
     Active Substance: DOCUSATE SODIUM
  12. LASIX [Concomitant]
     Active Substance: FUROSEMIDE

REACTIONS (6)
  - Death [Fatal]
  - Respiratory tract congestion [Not Recovered/Not Resolved]
  - Oedema peripheral [Not Recovered/Not Resolved]
  - Abdominal distension [Not Recovered/Not Resolved]
  - Asthenia [Not Recovered/Not Resolved]
  - Malaise [Unknown]

NARRATIVE: CASE EVENT DATE: 20140908
